APPROVED DRUG PRODUCT: SANCTURA
Active Ingredient: TROSPIUM CHLORIDE
Strength: 20MG **Federal Register determination that product was not discontinued or withdrawn for safety or effectiveness reasons**
Dosage Form/Route: TABLET;ORAL
Application: N021595 | Product #001
Applicant: ALLERGAN INC
Approved: May 28, 2004 | RLD: Yes | RS: No | Type: DISCN